FAERS Safety Report 19244142 (Version 1)
Quarter: 2021Q2

REPORT INFORMATION
  Report Type: Spontaneous
  Country: US (occurrence: US)
  Receive Date: 20210511
  Receipt Date: 20210511
  Transmission Date: 20210717
  Serious: Yes (Other)
  Sender: FDA-Public Use
  Company Number: US-COOPERSURGICAL, INC.-US-2021CPS001232

PATIENT
  Age: 29 Year
  Sex: Female
  Weight: 58.96 kg

DRUGS (3)
  1. CRANBERRY                          /01512301/ [Concomitant]
     Active Substance: CRANBERRY
     Indication: BLADDER DISCOMFORT
     Route: 065
  2. PARAGARD T 380A [Suspect]
     Active Substance: COPPER
     Indication: CONTRACEPTION
     Dosage: UNK
     Route: 015
     Dates: start: 2015
  3. CRANBERRY                          /01512301/ [Concomitant]
     Active Substance: CRANBERRY
     Indication: URINARY TRACT INFECTION

REACTIONS (7)
  - Device breakage [Not Recovered/Not Resolved]
  - Device expulsion [Recovered/Resolved]
  - Human papilloma virus test positive [Unknown]
  - Foreign body in reproductive tract [Not Recovered/Not Resolved]
  - Procedural pain [Unknown]
  - Escherichia urinary tract infection [Unknown]
  - Complication of device removal [Not Recovered/Not Resolved]

NARRATIVE: CASE EVENT DATE: 20210427
